FAERS Safety Report 9164041 (Version 1)
Quarter: 2013Q1

REPORT INFORMATION
  Report Type: Spontaneous
  Country: US (occurrence: US)
  Receive Date: 20130314
  Receipt Date: 20130314
  Transmission Date: 20140127
  Serious: No
  Sender: FDA-Public Use
  Company Number: US-009507513-1303USA006496

PATIENT
  Sex: Female
  Weight: 65.76 kg

DRUGS (1)
  1. NEXPLANON [Suspect]
     Indication: CONTRACEPTION
     Dosage: DOSE/FREQUENCY: 3 YEARS, LEFT ARM
     Route: 059
     Dates: start: 20130124

REACTIONS (2)
  - Implant site pruritus [Not Recovered/Not Resolved]
  - Implant site erythema [Not Recovered/Not Resolved]
